FAERS Safety Report 21744921 (Version 1)
Quarter: 2022Q4

REPORT INFORMATION
  Report Type: Spontaneous
  Country: US (occurrence: US)
  Receive Date: 20221219
  Receipt Date: 20221219
  Transmission Date: 20230112
  Serious: No
  Sender: FDA-Public Use
  Company Number: US-BRISTOL-MYERS SQUIBB COMPANY-2022-154634

PATIENT
  Age: 77 Year
  Sex: Female
  Weight: 57.61 kg

DRUGS (1)
  1. REVLIMID [Suspect]
     Active Substance: LENALIDOMIDE
     Indication: Plasma cell myeloma
     Dosage: EVERY OTHER DAY FOR ONE WEEK ON AND THEN ONE WEEK OFF.
     Route: 048
     Dates: start: 20191119

REACTIONS (4)
  - Nausea [Not Recovered/Not Resolved]
  - Gastric disorder [Not Recovered/Not Resolved]
  - Blood pressure abnormal [Not Recovered/Not Resolved]
  - Off label use [Unknown]
